FAERS Safety Report 7474614-9 (Version None)
Quarter: 2011Q2

REPORT INFORMATION
  Report Type: 
  Country: None (occurrence: None)
  Receive Date: 20110503
  Receipt Date: 20110418
  Transmission Date: 20111010
  Serious: Yes (Hospitalization, Other)
  Sender: FDA-Public Use
  Company Number: AUR-APL-2011-01425

PATIENT
  Age: 50 Year
  Sex: Female

DRUGS (7)
  1. SERTRALINE HYDROCHLORIDE [Suspect]
  2. ESTRADIOL [Concomitant]
  3. CALCIUM CARBONATE [Concomitant]
  4. FUROSEMIDE [Concomitant]
  5. FLEICAINDE [Concomitant]
  6. POTASSIUM CHLORIDE [Concomitant]
  7. WARFARIN SODIUM [Suspect]

REACTIONS (3)
  - DEEP VEIN THROMBOSIS [None]
  - HAEMORRHAGE [None]
  - DRUG INTERACTION [None]
